FAERS Safety Report 11700734 (Version 5)
Quarter: 2018Q1

REPORT INFORMATION
  Report Type: Spontaneous
  Country: JP (occurrence: JP)
  Receive Date: 20151105
  Receipt Date: 20180314
  Transmission Date: 20180508
  Serious: Yes (Life-Threatening, Hospitalization, Other)
  Sender: FDA-Public Use
  Company Number: JP-BRISTOL-MYERS SQUIBB COMPANY-BMS-2015-074616

PATIENT
  Age: 69 Year
  Sex: Male

DRUGS (3)
  1. HEPARINOID [Concomitant]
     Active Substance: CHONDROITIN SULFATE (BOVINE)
     Indication: PROPHYLAXIS
     Dosage: UNK
     Route: 065
     Dates: start: 20140731, end: 20141011
  2. CETUXIMAB. [Suspect]
     Active Substance: CETUXIMAB
     Indication: SQUAMOUS CELL CARCINOMA OF HEAD AND NECK
     Dosage: UNK UNK, UNKNOWN
     Route: 041
     Dates: start: 20140731, end: 20140828
  3. MINOCYCLINE [Concomitant]
     Active Substance: MINOCYCLINE\MINOCYCLINE HYDROCHLORIDE
     Indication: PROPHYLAXIS
     Dosage: 50 MG, UNKNOWN
     Dates: start: 20140731, end: 20140910

REACTIONS (18)
  - Platelet count decreased [Recovered/Resolved]
  - Aspiration [Recovered/Resolved]
  - Cholecystitis [Recovering/Resolving]
  - Pyrexia [Recovered/Resolved]
  - Hypocalcaemia [Recovered/Resolved]
  - Acute respiratory distress syndrome [Recovering/Resolving]
  - Dry mouth [Not Recovered/Not Resolved]
  - Vomiting [Recovered/Resolved]
  - Mendelson^s syndrome [Recovering/Resolving]
  - Anaemia [Recovered/Resolved]
  - Stomatitis [Recovering/Resolving]
  - Radiation skin injury [Recovered/Resolved]
  - Nausea [Recovering/Resolving]
  - Pharyngeal inflammation [Recovering/Resolving]
  - Dysphagia [Recovering/Resolving]
  - Nausea [Recovered/Resolved]
  - Hyperkalaemia [Recovered/Resolved]
  - Decreased appetite [Recovering/Resolving]

NARRATIVE: CASE EVENT DATE: 20140812
